FAERS Safety Report 22112781 (Version 1)
Quarter: 2023Q1

REPORT INFORMATION
  Report Type: Spontaneous
  Country: US (occurrence: None)
  Receive Date: 20230320
  Receipt Date: 20230320
  Transmission Date: 20230418
  Serious: Yes (Other)
  Sender: FDA-Public Use
  Company Number: 2023A063386

PATIENT
  Age: 27673 Day
  Sex: Male
  Weight: 86.2 kg

DRUGS (1)
  1. FARXIGA [Suspect]
     Active Substance: DAPAGLIFLOZIN PROPANEDIOL
     Indication: Blood glucose abnormal
     Dosage: 5
     Route: 048
     Dates: start: 20230301

REACTIONS (1)
  - Back disorder [Recovered/Resolved]

NARRATIVE: CASE EVENT DATE: 20230307
